FAERS Safety Report 19139965 (Version 1)
Quarter: 2021Q2

REPORT INFORMATION
  Report Type: Spontaneous
  Country: US (occurrence: US)
  Receive Date: 20210415
  Receipt Date: 20210415
  Transmission Date: 20210717
  Serious: Yes (Disabling)
  Sender: FDA-Public Use
  Company Number: None

PATIENT
  Age: 88 Year
  Sex: Male
  Weight: 83.92 kg

DRUGS (11)
  1. IBUPROFEN. [Concomitant]
     Active Substance: IBUPROFEN
  2. PRESERVISION [Concomitant]
     Active Substance: MINERALS\VITAMINS
  3. OXYBUTYMIN [Concomitant]
  4. VITAMIN B12 [Concomitant]
     Active Substance: CYANOCOBALAMIN
  5. CLOPIDOGREL BISULFATE. [Suspect]
     Active Substance: CLOPIDOGREL BISULFATE
     Dosage: ?          QUANTITY:2 DAY;?
     Route: 048
     Dates: start: 20201211, end: 20210115
  6. BRILINTA [Suspect]
     Active Substance: TICAGRELOR
     Indication: HEART VALVE REPLACEMENT
     Dosage: ?          QUANTITY:2 DAY;?
     Route: 048
     Dates: start: 20200915, end: 20201212
  7. LEVOTHYTOXINE [Concomitant]
  8. VITAMIN D3 [Concomitant]
     Active Substance: CHOLECALCIFEROL
  9. BAYER LOW [Concomitant]
  10. ATORVASTATIN CALCIUM. [Concomitant]
     Active Substance: ATORVASTATIN CALCIUM
  11. FISH OIL [Concomitant]
     Active Substance: FISH OIL

REACTIONS (2)
  - Vitreous floaters [None]
  - Visual impairment [None]
